FAERS Safety Report 23906612 (Version 8)
Quarter: 2024Q4

REPORT INFORMATION
  Report Type: Report from Study
  Country: ES (occurrence: ES)
  Receive Date: 20240528
  Receipt Date: 20241230
  Transmission Date: 20250115
  Serious: Yes (Hospitalization)
  Sender: ABBVIE
  Company Number: ES-ABBVIE-5771511

PATIENT
  Age: 70 Year
  Sex: Male

DRUGS (6)
  1. CARBIDOPA\LEVODOPA [Suspect]
     Active Substance: CARBIDOPA\LEVODOPA
     Indication: Parkinson^s disease
     Route: 050
     Dates: start: 20230525, end: 2024
  2. CARBIDOPA\LEVODOPA [Suspect]
     Active Substance: CARBIDOPA\LEVODOPA
     Dosage: CONTINUOUS DOSE WAS INCREASED
     Route: 050
     Dates: start: 2024, end: 20240627
  3. CARBIDOPA\LEVODOPA [Suspect]
     Active Substance: CARBIDOPA\LEVODOPA
     Dosage: DECREASE THE CONTINUES DOSE TO 3 ML/H
     Route: 050
     Dates: start: 20240627, end: 202408
  4. CARBIDOPA\LEVODOPA [Suspect]
     Active Substance: CARBIDOPA\LEVODOPA
     Dosage: DECREASES CONTINUOUS DOSE TO 2.5 ML/H
     Route: 050
     Dates: start: 202408
  5. RIVOTRIL [Concomitant]
     Active Substance: CLONAZEPAM
     Indication: Product used for unknown indication
     Dosage: FREQUENCY TEXT: AT NIGHT
     Dates: start: 20240627
  6. PRAMIPEXOLE DIHYDROCHLORIDE [Concomitant]
     Active Substance: PRAMIPEXOLE DIHYDROCHLORIDE
     Indication: Product used for unknown indication
     Dosage: DOSE REDUCED
     Dates: start: 202408

REACTIONS (13)
  - Hip fracture [Not Recovered/Not Resolved]
  - Disturbance in attention [Not Recovered/Not Resolved]
  - Therapeutic product effect incomplete [Unknown]
  - Hallucination [Recovering/Resolving]
  - Pneumonia [Recovering/Resolving]
  - Unevaluable event [Unknown]
  - Freezing phenomenon [Recovered/Resolved]
  - Unevaluable event [Unknown]
  - Fall [Recovering/Resolving]
  - Muscle rigidity [Unknown]
  - Abnormal behaviour [Not Recovered/Not Resolved]
  - Freezing phenomenon [Not Recovered/Not Resolved]
  - Condition aggravated [Unknown]

NARRATIVE: CASE EVENT DATE: 20240101
